FAERS Safety Report 8591338-5 (Version None)
Quarter: 2012Q3

REPORT INFORMATION
  Report Type: 
  Country: None (occurrence: None)
  Receive Date: 20120814
  Receipt Date: 20120807
  Transmission Date: 20120928
  Serious: Yes (Death)
  Sender: FDA-Public Use
  Company Number: CA-BRISTOL-MYERS SQUIBB COMPANY-16684565

PATIENT
  Age: 70 Year
  Sex: Male

DRUGS (18)
  1. COUMADIN [Concomitant]
  2. FUROSEMIDE [Concomitant]
  3. METOPROLOL [Concomitant]
  4. ALLOPURINOL [Concomitant]
  5. CRESTOR [Concomitant]
  6. NEXIUM [Concomitant]
  7. FLOMAX [Concomitant]
  8. PREDNISONE TAB [Concomitant]
  9. METHOTREXATE [Concomitant]
  10. RANITIDINE [Concomitant]
  11. HYDROMORPHONE HCL [Concomitant]
  12. CALCIUM [Concomitant]
  13. LEUCOVORIN CALCIUM [Concomitant]
  14. PERINDOPRIL ERBUMINE [Concomitant]
  15. LYRICA [Concomitant]
  16. METFORMIN HYDROCHLORIDE [Concomitant]
  17. ORENCIA [Suspect]
     Indication: RHEUMATOID ARTHRITIS
     Dosage: LAST DOSE ON 09NOV11
     Route: 042
     Dates: start: 20110719
  18. TRIDURAL [Concomitant]

REACTIONS (1)
  - CARDIOPULMONARY FAILURE [None]
